FAERS Safety Report 6406523-8 (Version None)
Quarter: 2009Q4

REPORT INFORMATION
  Report Type: 
  Country: None (occurrence: None)
  Receive Date: 20091008
  Receipt Date: 20090930
  Transmission Date: 20100525
  Serious: Yes (Life-Threatening)
  Sender: FDA-Public Use
  Company Number: M2009-022A

PATIENT
  Age: 40 Year
  Sex: Male
  Weight: 102.0593 kg

DRUGS (4)
  1. MOLD MIX #10 NSTD GLY 1-10 W/V HOLLIST-STIER [Suspect]
     Indication: HYPERSENSITIVITY
     Dosage: 0.35ML, 2 MONTHS, INJECTION
     Route: 042
     Dates: start: 20000721
  2. VERAMYST, PATANESE NASAL SPRAY [Concomitant]
  3. DIOVAN HCT [Concomitant]
  4. GRASS, AP DOG, DUST MITE [Concomitant]

REACTIONS (3)
  - HYPOTENSION [None]
  - LOSS OF CONSCIOUSNESS [None]
  - MALAISE [None]
